FAERS Safety Report 21793814 (Version 1)
Quarter: 2022Q4

REPORT INFORMATION
  Report Type: Spontaneous
  Country: US (occurrence: None)
  Receive Date: 20221228
  Receipt Date: 20221228
  Transmission Date: 20230113
  Serious: Yes (Hospitalization)
  Sender: FDA-Public Use
  Company Number: None

PATIENT
  Age: 78 Year
  Sex: Male
  Weight: 56.9 kg

DRUGS (10)
  1. YESCARTA [Suspect]
     Active Substance: AXICABTAGENE CILOLEUCEL
     Indication: Diffuse large B-cell lymphoma
     Dosage: OTHER FREQUENCY : ONCE;?
     Route: 041
     Dates: start: 20220913
  2. ACTEMRA [Concomitant]
     Active Substance: TOCILIZUMAB
     Dates: start: 20220918, end: 20220920
  3. dexAMETHasone (Decadron) injection [Concomitant]
     Dates: start: 20220918, end: 20221005
  4. anakinra (Kineret) [Concomitant]
     Dates: start: 20220919, end: 20221003
  5. NOREPINEPHRINE [Concomitant]
     Active Substance: NOREPINEPHRINE
     Dates: start: 20220919, end: 20220923
  6. vasopressin (Vasostrict) [Concomitant]
     Dates: start: 20220919, end: 20221223
  7. lacosamide (Vimpat) [Concomitant]
     Dates: start: 20220920, end: 20220924
  8. piperacillin-tazobactam (Zosyn [Concomitant]
     Dates: start: 20220917, end: 20220920
  9. MEROPENEM [Concomitant]
     Active Substance: MEROPENEM
     Dates: start: 20220920, end: 20221005
  10. levETIRAcetam (Keppra [Concomitant]
     Dates: start: 20220912, end: 20221114

REACTIONS (4)
  - Cytokine release syndrome [None]
  - Immune effector cell-associated neurotoxicity syndrome [None]
  - Delirium [None]
  - Dry gangrene [None]

NARRATIVE: CASE EVENT DATE: 20220101
